FAERS Safety Report 20444110 (Version 2)
Quarter: 2022Q1

REPORT INFORMATION
  Report Type: Spontaneous
  Country: NL (occurrence: NL)
  Receive Date: 20220208
  Receipt Date: 20220217
  Transmission Date: 20220423
  Serious: Yes (Other)
  Sender: FDA-Public Use
  Company Number: NL-ZAMBON-202200172NLD

PATIENT
  Sex: Male

DRUGS (3)
  1. COMBIVENT [Suspect]
     Active Substance: ALBUTEROL SULFATE\IPRATROPIUM BROMIDE
     Indication: Dyspnoea
  2. FLUIMUCIL [Suspect]
     Active Substance: ACETYLCYSTEINE
     Indication: Dyspnoea
     Dosage: 4 DF TOTAL
  3. FLUIMUCIL [Suspect]
     Active Substance: ACETYLCYSTEINE
     Dosage: 1 DF PRN

REACTIONS (3)
  - Respiratory tract haemorrhage [Unknown]
  - Off label use [Unknown]
  - Oropharyngeal pain [Unknown]
